FAERS Safety Report 26082976 (Version 1)
Quarter: 2025Q4

REPORT INFORMATION
  Report Type: Spontaneous
  Country: BR (occurrence: BR)
  Receive Date: 20251124
  Receipt Date: 20251124
  Transmission Date: 20260118
  Serious: Yes (Hospitalization)
  Sender: ELI LILLY AND COMPANY
  Company Number: BR-ELI_LILLY_AND_COMPANY-BR202511015417

PATIENT
  Age: 60 Year
  Sex: Female

DRUGS (1)
  1. TALTZ [Suspect]
     Active Substance: IXEKIZUMAB
     Indication: Psoriatic arthropathy
     Dosage: 80 MG, OTHER (EVERY 28 DAYS)
     Route: 058
     Dates: start: 202401

REACTIONS (3)
  - Bradycardia [Recovering/Resolving]
  - Pericardial haemorrhage [Recovering/Resolving]
  - Pericardial effusion [Recovering/Resolving]
